FAERS Safety Report 21164560 (Version 1)
Quarter: 2022Q3

REPORT INFORMATION
  Report Type: Spontaneous
  Country: US (occurrence: US)
  Receive Date: 20220803
  Receipt Date: 20220803
  Transmission Date: 20221026
  Serious: Yes (Life-Threatening, Other)
  Sender: FDA-Public Use
  Company Number: US-JNJFOC-20220752382

PATIENT
  Age: 3 Year
  Sex: Male

DRUGS (2)
  1. RISPERDAL [Suspect]
     Active Substance: RISPERIDONE
     Indication: Attention deficit hyperactivity disorder
     Dosage: EVERY MORNING
     Route: 048
     Dates: start: 200905
  2. RISPERDAL [Suspect]
     Active Substance: RISPERIDONE
     Indication: Autism spectrum disorder
     Dosage: EVERY MORNING
     Route: 048
     Dates: start: 200906

REACTIONS (7)
  - Abnormal sleep-related event [Recovered/Resolved]
  - Pallor [Unknown]
  - Unresponsive to stimuli [Recovered/Resolved]
  - Listless [Unknown]
  - Treatment noncompliance [Unknown]
  - Drug ineffective for unapproved indication [Unknown]
  - Off label use [Unknown]

NARRATIVE: CASE EVENT DATE: 20090101
